FAERS Safety Report 7646761-X (Version None)
Quarter: 2011Q3

REPORT INFORMATION
  Report Type: 
  Country: None (occurrence: None)
  Receive Date: 20110801
  Receipt Date: 20110721
  Transmission Date: 20111222
  Serious: Yes (Other)
  Sender: FDA-Public Use
  Company Number: CA-BRISTOL-MYERS SQUIBB COMPANY-15278849

PATIENT
  Age: 39 Year
  Sex: Female
  Weight: 100 kg

DRUGS (3)
  1. AVAPRO [Suspect]
     Indication: HYPERTENSION
     Dosage: 1DF:DOSE EXPOSU ON 1 TRIME,150 UNS UNTIL 3-5 WEEKS,DURAT:21-35DAYS,JUL-AUG10,AVAPRO 150 ON 15MAY11
     Route: 048
     Dates: end: 20100101
  2. EFFEXOR XR [Suspect]
     Dosage: STOPPED WITH IN 10DAYS,RESTARTED AT 2ND TRIMESTER
  3. TRANDATE [Concomitant]
     Indication: HYPERTENSION

REACTIONS (3)
  - HAEMORRHAGE [None]
  - NORMAL NEWBORN [None]
  - PREGNANCY [None]
